FAERS Safety Report 5491808-2 (Version None)
Quarter: 2007Q4

REPORT INFORMATION
  Report Type: 
  Country: None (occurrence: None)
  Receive Date: 20071022
  Receipt Date: 20071017
  Transmission Date: 20080405
  Serious: Yes (Other)
  Sender: FDA-Public Use
  Company Number: US-BRISTOL-MYERS SQUIBB COMPANY-13945944

PATIENT
  Age: 69 Year
  Sex: Female

DRUGS (10)
  1. CARBOPLATIN [Suspect]
     Indication: OVARIAN CANCER
     Dosage: 31-MAR-2006,CYCLE1;  28-APR-2006,CYC2;  26-MAY-2006,CYC3.
     Route: 042
     Dates: start: 20060331
  2. TLK286 [Suspect]
     Indication: OVARIAN CANCER
     Dosage: 31-MAR-2006,CYCLE1;  28-APR-2006,CYC2;  26-MAY-2006,CYC3
     Route: 042
     Dates: start: 20060331
  3. METOCLOPRAMIDE HCL [Concomitant]
     Indication: NAUSEA
     Route: 048
     Dates: start: 20060331
  4. ONDANSETRON HCL [Concomitant]
     Indication: NAUSEA
     Route: 048
     Dates: start: 20060331
  5. WARFARIN SODIUM [Concomitant]
     Indication: THROMBOSIS PROPHYLAXIS
     Route: 048
     Dates: start: 20041122
  6. PARACETAMOL [Concomitant]
     Indication: PAIN
     Route: 048
  7. SENNA [Concomitant]
     Indication: DIARRHOEA
     Route: 048
  8. EPOGEN [Concomitant]
     Indication: ANAEMIA
     Route: 058
     Dates: start: 20060414
  9. LORAZEPAM [Concomitant]
     Indication: NAUSEA
     Route: 042
     Dates: start: 20060331, end: 20060524
  10. GRANISETRON  HCL [Concomitant]
     Indication: NAUSEA
     Route: 042
     Dates: start: 20060331

REACTIONS (1)
  - RED MAN SYNDROME [None]
